FAERS Safety Report 9250489 (Version 1)
Quarter: 2013Q1

REPORT INFORMATION
  Report Type: Spontaneous
  Country: US (occurrence: None)
  Receive Date: 20130305
  Receipt Date: 20130305
  Transmission Date: 20140127
  Serious: Yes (Other)
  Sender: FDA-Public Use
  Company Number: 163-21880-12061215 (0)

PATIENT
  Age: 77 Year
  Sex: Male
  Weight: 79.4 kg

DRUGS (14)
  1. REVLIMID [Suspect]
     Indication: PLASMA CELL MYELOMA
     Dosage: DAYS 1-21 OF 28,
     Route: 048
     Dates: start: 20120523
  2. BENDAMUSTINE (BENDAMUSTINE) (BENDAMUSTINE) [Concomitant]
  3. DEXAMETHASONE (DEXAMETHASONE)(TABLETS) [Concomitant]
  4. WARFARIN (WARFARIN) (TABLETS) [Concomitant]
  5. OMEPRAZOLE (OMEPRAZOLE) [Concomitant]
  6. TAMSULOSIN (TAMSULOSIN) [Concomitant]
  7. CETIRIZINE (CETIRIZINE) [Concomitant]
  8. ZOLEDRONIC ACID (ZOLEDRONIC ACID) [Concomitant]
  9. PROCHLORPERAZINE (PROCHLORPERAZINE)(TABLETS) [Concomitant]
  10. FIBERCON(POLYCARBOPHIL CALCIUM) [Concomitant]
  11. MAGNESIUM (MAGNESIUM)(UNKNOWN) [Concomitant]
  12. FISH OIL(FISH OIL) [Concomitant]
  13. VITAMIN D(ERGOCALCIFEROL)(UNKNOWN) [Concomitant]
  14. MULTIVITAMINS(MULTIVITAMINS)(UNKNOWN) [Concomitant]

REACTIONS (1)
  - Rash maculo-papular [None]
